FAERS Safety Report 4951470-1 (Version None)
Quarter: 2006Q1

REPORT INFORMATION
  Report Type: 
  Country: None (occurrence: None)
  Receive Date: 20060317
  Receipt Date: 20060307
  Transmission Date: 20060701
  Serious: Yes (Other)
  Sender: FDA-Public Use
  Company Number: MC200600190

PATIENT
  Sex: 0

DRUGS (1)
  1. ANGIOMAX [Suspect]

REACTIONS (1)
  - CORONARY ARTERY DISSECTION [None]
